FAERS Safety Report 12651780 (Version 2)
Quarter: 2016Q3

REPORT INFORMATION
  Report Type: Spontaneous
  Country: DE (occurrence: DE)
  Receive Date: 20160815
  Receipt Date: 20160818
  Transmission Date: 20161109
  Serious: Yes (Other)
  Sender: FDA-Public Use
  Company Number: DE-BAYER-2016-154565

PATIENT
  Age: 35 Year
  Sex: Female

DRUGS (1)
  1. JAYDESS [Suspect]
     Active Substance: LEVONORGESTREL
     Indication: CONTRACEPTION
     Dosage: 14 MCG/24HR, CONT
     Route: 015
     Dates: start: 20141203

REACTIONS (4)
  - Device dislocation [None]
  - Gestational diabetes [None]
  - Drug ineffective [None]
  - Pregnancy with contraceptive device [None]

NARRATIVE: CASE EVENT DATE: 20160712
